FAERS Safety Report 20834330 (Version 15)
Quarter: 2025Q3

REPORT INFORMATION
  Report Type: Report from Study
  Country: EU (occurrence: EU)
  Receive Date: 20220516
  Receipt Date: 20250814
  Transmission Date: 20251021
  Serious: Yes (Hospitalization)
  Sender: PFIZER
  Company Number: EU-PFM-2022-02844

PATIENT
  Age: 80 Year
  Sex: Female

DRUGS (10)
  1. ENCORAFENIB [Suspect]
     Active Substance: ENCORAFENIB
     Indication: Malignant melanoma
     Dosage: 450 MG 1 X PER DAY
     Route: 048
     Dates: start: 20211202, end: 20220401
  2. BINIMETINIB [Suspect]
     Active Substance: BINIMETINIB
     Indication: Malignant melanoma
     Dosage: 45 MG 2 X PER DAY
     Route: 048
     Dates: start: 20211202, end: 20220401
  3. RAMIPRIL [Concomitant]
     Active Substance: RAMIPRIL
     Route: 065
  4. PANTOZOL [Concomitant]
     Active Substance: PANTOPRAZOLE SODIUM
     Indication: Prophylaxis
     Route: 065
  5. MIRTAZAPINE [Concomitant]
     Active Substance: MIRTAZAPINE
     Indication: Malignant melanoma
     Route: 065
     Dates: start: 20211115
  6. DEXAMETHASONE [Concomitant]
     Active Substance: DEXAMETHASONE
     Route: 065
  7. PROPRANOLOL HYDROCHLORIDE [Concomitant]
     Active Substance: PROPRANOLOL HYDROCHLORIDE
     Route: 065
     Dates: start: 20211004
  8. SIMVASTATIN [Concomitant]
     Active Substance: SIMVASTATIN
     Route: 065
     Dates: start: 20211115
  9. RISPERIDONE [Concomitant]
     Active Substance: RISPERIDONE
     Route: 065
     Dates: start: 2021
  10. DALTEPARIN SODIUM [Concomitant]
     Active Substance: DALTEPARIN SODIUM
     Indication: Prophylaxis
     Route: 065

REACTIONS (4)
  - Urinary tract infection [Recovered/Resolved]
  - Aphasia [Recovered/Resolved]
  - Fall [Not Recovered/Not Resolved]
  - Gliosis [Recovered/Resolved]

NARRATIVE: CASE EVENT DATE: 20220105
